FAERS Safety Report 5558766-3 (Version None)
Quarter: 2007Q4

REPORT INFORMATION
  Report Type: 
  Country: None (occurrence: None)
  Receive Date: 20071214
  Receipt Date: 20070905
  Transmission Date: 20080405
  Serious: Yes (Hospitalization)
  Sender: FDA-Public Use
  Company Number: US-ABBOTT-07P-163-0416331-00

PATIENT
  Sex: Male
  Weight: 62.652 kg

DRUGS (7)
  1. HUMIRA [Suspect]
     Indication: CROHN'S DISEASE
     Route: 058
     Dates: start: 20070509, end: 20070828
  2. HUMIRA [Suspect]
     Route: 058
     Dates: start: 20061127, end: 20061211
  3. HUMIRA [Suspect]
     Route: 058
     Dates: start: 20061211, end: 20061222
  4. HUMIRA [Suspect]
     Route: 058
     Dates: start: 20061222, end: 20070129
  5. HUMIRA [Suspect]
     Route: 058
     Dates: start: 20070129, end: 20070509
  6. OXYCODONE HYDROCHLORIDE [Concomitant]
     Indication: PAIN
     Route: 048
  7. METRONIDAZOLE HCL [Concomitant]
     Indication: CROHN'S DISEASE
     Route: 048

REACTIONS (1)
  - SIGNET-RING CELL CARCINOMA [None]
